FAERS Safety Report 18394600 (Version 1)
Quarter: 2020Q4

REPORT INFORMATION
  Report Type: Spontaneous
  Country: US (occurrence: US)
  Receive Date: 20201016
  Receipt Date: 20201016
  Transmission Date: 20210114
  Serious: No
  Sender: FDA-Public Use
  Company Number: US-TEVA-2020-US-1837986

PATIENT
  Age: 64 Year
  Sex: Female

DRUGS (4)
  1. VITAMIN D [Interacting]
     Active Substance: VITAMIN D NOS
     Route: 065
     Dates: start: 2020
  2. VITAMIN D [Interacting]
     Active Substance: VITAMIN D NOS
     Route: 065
     Dates: end: 202008
  3. ZINC. [Concomitant]
     Active Substance: ZINC
     Indication: BLOOD GLUCOSE ABNORMAL
     Route: 065
  4. DILTIAZEM HYDROCHLORIDE TEVA [Suspect]
     Active Substance: DILTIAZEM HYDROCHLORIDE
     Indication: BLOOD PRESSURE ABNORMAL
     Dosage: TO TAKE EVERY FOUR HOURS; LATER SHE IS TAKING IT EVERY SIX HOURS
     Route: 065
     Dates: start: 201611

REACTIONS (5)
  - Platelet count decreased [Not Recovered/Not Resolved]
  - Urine output increased [Unknown]
  - Pollakiuria [Recovering/Resolving]
  - Drug interaction [Unknown]
  - Vitamin D deficiency [Not Recovered/Not Resolved]
